FAERS Safety Report 6427604-9 (Version None)
Quarter: 2009Q4

REPORT INFORMATION
  Report Type: 
  Country: None (occurrence: None)
  Receive Date: 20091027
  Receipt Date: 20091013
  Transmission Date: 20100525
  Serious: Yes (Death, Other)
  Sender: FDA-Public Use
  Company Number: 2007314447

PATIENT
  Age: 6 Month
  Sex: Male

DRUGS (1)
  1. PSEUDOEPHEDRINE HCL [Suspect]

REACTIONS (3)
  - ANOXIC ENCEPHALOPATHY [None]
  - APNOEA [None]
  - MUSCLE RIGIDITY [None]
